FAERS Safety Report 22009938 (Version 1)
Quarter: 2023Q1

REPORT INFORMATION
  Report Type: Spontaneous
  Country: CA (occurrence: CA)
  Receive Date: 20230220
  Receipt Date: 20230220
  Transmission Date: 20230418
  Serious: Yes (Other)
  Sender: FDA-Public Use
  Company Number: CA-BoehringerIngelheim-2023-BI-219262

PATIENT
  Age: 77 Year
  Sex: Female

DRUGS (7)
  1. SPIRIVA [Suspect]
     Active Substance: TIOTROPIUM BROMIDE MONOHYDRATE
     Indication: Product used for unknown indication
     Dosage: 2.0 DOSAGE FORMS
  2. MEPOLIZUMAB [Suspect]
     Active Substance: MEPOLIZUMAB
     Indication: Asthma
     Route: 058
  3. ALVESCO [Suspect]
     Active Substance: CICLESONIDE
     Indication: Product used for unknown indication
     Dosage: 2.0 DOSAGE FORMS?FORM: AEROSOL, METERED DOSE
     Route: 055
  4. BUDESONIDE\FORMOTEROL FUMARATE [Suspect]
     Active Substance: BUDESONIDE\FORMOTEROL FUMARATE
     Indication: Product used for unknown indication
     Dosage: 2.0 DOSAGE FORMS
  5. BENRALIZUMAB [Suspect]
     Active Substance: BENRALIZUMAB
     Indication: Product used for unknown indication
  6. ALBUTEROL SULFATE [Suspect]
     Active Substance: ALBUTEROL SULFATE
     Indication: Asthma
  7. SINGULAIR [Suspect]
     Active Substance: MONTELUKAST SODIUM
     Indication: Product used for unknown indication
     Dosage: 1 EVERY 1 DAYS

REACTIONS (8)
  - Asthma [Unknown]
  - Loss of personal independence in daily activities [Unknown]
  - Dyspnoea [Unknown]
  - Wheezing [Unknown]
  - Nasopharyngitis [Unknown]
  - Productive cough [Unknown]
  - Secretion discharge [Unknown]
  - Therapeutic product effect incomplete [Unknown]
